FAERS Safety Report 12765338 (Version 1)
Quarter: 2016Q3

REPORT INFORMATION
  Report Type: Spontaneous
  Country: US (occurrence: US)
  Receive Date: 20160921
  Receipt Date: 20160921
  Transmission Date: 20161109
  Serious: No
  Sender: FDA-Public Use
  Company Number: US-PFIZER INC-2016436097

PATIENT
  Age: 39 Year
  Sex: Female
  Weight: 70.31 kg

DRUGS (3)
  1. EXCEDRIN [Concomitant]
     Active Substance: ACETAMINOPHEN\ASPIRIN\CAFFEINE
     Indication: MIGRAINE
  2. CHANTIX [Suspect]
     Active Substance: VARENICLINE TARTRATE
     Indication: SMOKING CESSATION THERAPY
     Dosage: UNK
     Dates: start: 2006
  3. ALLEGRA D NON-DROWSY [Concomitant]
     Indication: SEASONAL ALLERGY

REACTIONS (2)
  - Abnormal dreams [Recovered/Resolved]
  - Injury [Unknown]

NARRATIVE: CASE EVENT DATE: 2006
